FAERS Safety Report 11197264 (Version 1)
Quarter: 2015Q2

REPORT INFORMATION
  Report Type: Spontaneous
  Country: US (occurrence: US)
  Receive Date: 20150617
  Receipt Date: 20150617
  Transmission Date: 20150821
  Serious: No
  Sender: FDA-Public Use
  Company Number: US-SA-2015SA064493

PATIENT
  Age: 71 Year
  Sex: Female

DRUGS (1)
  1. CEREZYME [Suspect]
     Active Substance: IMIGLUCERASE
     Indication: LIPIDOSIS
     Dosage: DOSE:3600 UNIT(S)
     Route: 042
     Dates: start: 20090127

REACTIONS (1)
  - Periarthritis [Unknown]

NARRATIVE: CASE EVENT DATE: 20150401
